FAERS Safety Report 18396599 (Version 1)
Quarter: 2020Q4

REPORT INFORMATION
  Report Type: Report from Study
  Country: US (occurrence: US)
  Receive Date: 20201019
  Receipt Date: 20201019
  Transmission Date: 20210114
  Serious: Yes (Other)
  Sender: FDA-Public Use
  Company Number: US-BIOGEN-2020BI00928906

PATIENT
  Sex: Female

DRUGS (2)
  1. VUMERITY [Suspect]
     Active Substance: DIROXIMEL FUMARATE
     Dosage: MAINTENANCE DOSE
     Route: 065
     Dates: start: 20200921
  2. VUMERITY [Suspect]
     Active Substance: DIROXIMEL FUMARATE
     Indication: MULTIPLE SCLEROSIS
     Route: 065
     Dates: start: 20200912

REACTIONS (9)
  - Underdose [Recovered/Resolved]
  - Depression [Recovered/Resolved]
  - Feeling of body temperature change [Unknown]
  - Blindness transient [Recovered/Resolved]
  - Abdominal discomfort [Not Recovered/Not Resolved]
  - Erythema [Unknown]
  - Feeling cold [Unknown]
  - Fatigue [Unknown]
  - Flushing [Not Recovered/Not Resolved]
